FAERS Safety Report 5754765-7 (Version None)
Quarter: 2008Q2

REPORT INFORMATION
  Report Type: 
  Country: None (occurrence: None)
  Receive Date: 20080530
  Receipt Date: 20080519
  Transmission Date: 20081010
  Serious: Yes (Other)
  Sender: FDA-Public Use
  Company Number: KR-PFIZER INC-2008044636

PATIENT
  Age: 60 Year
  Sex: Male

DRUGS (2)
  1. CHANTIX [Suspect]
     Dosage: DAILY DOSE:2MG
     Route: 048
  2. XANAX [Suspect]
     Route: 048

REACTIONS (10)
  - AMNESIA [None]
  - CHEST DISCOMFORT [None]
  - CHEST PAIN [None]
  - DEPRESSION [None]
  - GLOSSODYNIA [None]
  - HEADACHE [None]
  - LOSS OF CONSCIOUSNESS [None]
  - PALPITATIONS [None]
  - SALIVARY HYPERSECRETION [None]
  - WITHDRAWAL SYNDROME [None]
